FAERS Safety Report 17446876 (Version 1)
Quarter: 2020Q1

REPORT INFORMATION
  Report Type: Spontaneous
  Country: CN (occurrence: CN)
  Receive Date: 20200221
  Receipt Date: 20200221
  Transmission Date: 20200409
  Serious: Yes (Other)
  Sender: FDA-Public Use
  Company Number: CN-BAYER-2020-030251

PATIENT
  Age: 72 Year
  Sex: Female
  Weight: 60 kg

DRUGS (1)
  1. AVELOX [Suspect]
     Active Substance: MOXIFLOXACIN HYDROCHLORIDE
     Indication: ANTI-INFECTIVE THERAPY
     Dosage: 0.4 G, QD
     Route: 041
     Dates: start: 20200106, end: 20200113

REACTIONS (6)
  - Speech disorder [Recovering/Resolving]
  - Lacunar infarction [None]
  - Hypoxia [None]
  - Dizziness [Recovering/Resolving]
  - Depressed mood [Recovering/Resolving]
  - Blood potassium decreased [None]

NARRATIVE: CASE EVENT DATE: 20200112
